FAERS Safety Report 9719029 (Version 4)
Quarter: 2024Q1

REPORT INFORMATION
  Report Type: Spontaneous
  Country: IT (occurrence: IT)
  Receive Date: 20131127
  Receipt Date: 20240126
  Transmission Date: 20240409
  Serious: Yes (Other)
  Sender: FDA-Public Use
  Company Number: IT-PFIZER INC-2013336369

PATIENT
  Age: 72 Year
  Sex: Male

DRUGS (12)
  1. ATORVASTATIN CALCIUM [Interacting]
     Active Substance: ATORVASTATIN CALCIUM
     Indication: Hypercholesterolaemia
     Dosage: 40 MG, DAILY
     Dates: end: 201202
  2. ATORVASTATIN CALCIUM [Interacting]
     Active Substance: ATORVASTATIN CALCIUM
     Indication: Hypertriglyceridaemia
  3. BISOPROLOL FUMARATE [Interacting]
     Active Substance: BISOPROLOL FUMARATE
     Dosage: 2.5 MG, DAILY
  4. OMEPRAZOLE [Interacting]
     Active Substance: OMEPRAZOLE
     Dosage: 20 MG, DAILY
  5. QUETIAPINE FUMARATE [Interacting]
     Active Substance: QUETIAPINE FUMARATE
     Indication: Behaviour disorder
     Dosage: 50 MG, DAILY
  6. SERTRALINE HYDROCHLORIDE [Interacting]
     Active Substance: SERTRALINE HYDROCHLORIDE
     Indication: Behaviour disorder
     Dosage: 25 MG, DAILY
  7. NITROGLYCERIN [Interacting]
     Active Substance: NITROGLYCERIN
     Dosage: 10 MG, DAILY
     Route: 062
  8. VALSARTAN [Interacting]
     Active Substance: VALSARTAN
     Dosage: 20 MG, DAILY
  9. FUROSEMIDE [Interacting]
     Active Substance: FUROSEMIDE
     Indication: Diuretic therapy
     Dosage: 25 MG, 2X/WEEK
  10. RANOLAZINE [Interacting]
     Active Substance: RANOLAZINE
     Indication: Angina pectoris
     Dosage: 1000 MG, DAILY
     Dates: start: 201107
  11. ASPIRIN [Interacting]
     Active Substance: ASPIRIN
     Dosage: 100 MG, DAILY
  12. ALLOPURINOL [Interacting]
     Active Substance: ALLOPURINOL
     Dosage: 150 MG, DAILY

REACTIONS (2)
  - Drug interaction [Unknown]
  - Rhabdomyolysis [Recovered/Resolved]
